FAERS Safety Report 8345966-2 (Version None)
Quarter: 2012Q2

REPORT INFORMATION
  Report Type: 
  Country: None (occurrence: None)
  Receive Date: 20120507
  Receipt Date: 20120424
  Transmission Date: 20120825
  Serious: Yes (Life-Threatening, Hospitalization)
  Sender: FDA-Public Use
  Company Number: JP-1191815

PATIENT
  Age: 67 Year
  Sex: Male

DRUGS (1)
  1. FLUORESCITE [Suspect]
     Indication: ANGIOGRAM RETINA
     Dosage: (500 MG INTRAVENOUS BOLUS)
     Route: 040
     Dates: start: 20120326, end: 20120326

REACTIONS (4)
  - MALAISE [None]
  - ANAPHYLACTIC SHOCK [None]
  - LOSS OF CONSCIOUSNESS [None]
  - PULSE ABSENT [None]
